FAERS Safety Report 10243201 (Version 1)
Quarter: 2014Q2

REPORT INFORMATION
  Report Type: Spontaneous
  Country: IE (occurrence: IE)
  Receive Date: 20140618
  Receipt Date: 20140618
  Transmission Date: 20141212
  Serious: Yes (Death)
  Sender: FDA-Public Use
  Company Number: IE-AMGEN-IRLSP2014045139

PATIENT
  Age: 71 Year
  Sex: Male

DRUGS (5)
  1. NEUPOGEN [Suspect]
     Indication: MYELODYSPLASTIC SYNDROME
     Dosage: 30 MU, ONCE A WEEK
     Route: 058
     Dates: start: 20100819
  2. ARANESP [Suspect]
     Indication: MYELODYSPLASTIC SYNDROME
     Dosage: 150 MCG, EVERY TWO WEEKS
     Route: 058
     Dates: start: 20100819
  3. ISTIN [Concomitant]
     Dosage: UNK
  4. NSA [Concomitant]
     Dosage: UNK
  5. ARICEPT [Concomitant]
     Dosage: UNK

REACTIONS (1)
  - Death [Fatal]
